FAERS Safety Report 9189855 (Version 2)
Quarter: 2013Q1

REPORT INFORMATION
  Report Type: Report from Study
  Country: CA (occurrence: CA)
  Receive Date: 20130326
  Receipt Date: 20130329
  Transmission Date: 20140127
  Serious: Yes (Hospitalization)
  Sender: FDA-Public Use
  Company Number: CA-VERTEX PHARMACEUTICALS INC.-2013-003837

PATIENT
  Age: 56 Year
  Sex: Male
  Weight: 50 kg

DRUGS (10)
  1. VX-950 (TELAPREVIR) [Suspect]
     Indication: HEPATITIS C
     Dosage: 1125 MG, BID
     Route: 048
     Dates: start: 20121024, end: 20130115
  2. Z-PEGYLATED INTERFERON-2A [Suspect]
     Indication: HEPATITIS C
     Dosage: 180 ?G, UNK
     Route: 058
     Dates: start: 20121024, end: 20130115
  3. Z-RIBAVIRIN [Suspect]
     Indication: HEPATITIS C
     Dosage: 1000 MG, QD
     Route: 048
     Dates: start: 20121024, end: 20130115
  4. APO-NAPROXEN [Concomitant]
     Indication: ARTHRITIS
     Dosage: 550 MG, BID
     Dates: start: 201203
  5. APO-QUETIAPINE [Concomitant]
     Indication: PSYCHOTIC DISORDER
     Dosage: 25 MG, UNK
     Dates: start: 20120320
  6. LORAZEPAM [Concomitant]
     Indication: ANXIETY
     Dosage: 1 MG, TID
     Dates: start: 20121031
  7. APO-ZOPICLONE [Concomitant]
     Indication: INSOMNIA
     Dosage: 7.5 MG, UNK
     Dates: start: 20121213
  8. CIALIS [Concomitant]
     Indication: ERECTILE DYSFUNCTION
     Dosage: 5 MG, UNK
     Dates: start: 20120320
  9. PANTOPRAZOLE [Concomitant]
     Indication: ULCER
     Dosage: 1 UNK, BID
     Dates: start: 20120320
  10. NICODERM [Concomitant]
     Indication: SMOKING CESSATION THERAPY
     Dosage: 21 MG, UNK
     Dates: start: 2013

REACTIONS (1)
  - Psychotic disorder [Recovered/Resolved]
